FAERS Safety Report 18391490 (Version 1)
Quarter: 2020Q4

REPORT INFORMATION
  Report Type: Spontaneous
  Country: US (occurrence: US)
  Receive Date: 20201015
  Receipt Date: 20201015
  Transmission Date: 20210114
  Serious: Yes (Death, Life-Threatening, Hospitalization, Disabling, Other)
  Sender: FDA-Public Use
  Company Number: None

PATIENT
  Age: 82 Year
  Sex: Female
  Weight: 75.6 kg

DRUGS (1)
  1. AMIODARONE [Suspect]
     Active Substance: AMIODARONE
     Indication: ATRIAL FIBRILLATION
     Route: 048

REACTIONS (20)
  - International normalised ratio increased [None]
  - Balance disorder [None]
  - Hepatic enzyme increased [None]
  - Renal impairment [None]
  - Depression [None]
  - Urinary tract infection [None]
  - Hypophagia [None]
  - Fall [None]
  - Hepatic cirrhosis [None]
  - Dehydration [None]
  - Enterococcus test positive [None]
  - Somnolence [None]
  - Anxiety [None]
  - Fatigue [None]
  - Nausea [None]
  - Abdominal pain upper [None]
  - Cholecystectomy [None]
  - Unresponsive to stimuli [None]
  - Asthenia [None]
  - Grip strength decreased [None]

NARRATIVE: CASE EVENT DATE: 20200709
